FAERS Safety Report 25525042 (Version 1)
Quarter: 2025Q3

REPORT INFORMATION
  Report Type: Spontaneous
  Country: US (occurrence: US)
  Receive Date: 20250707
  Receipt Date: 20250707
  Transmission Date: 20251021
  Serious: No
  Sender: SANOFI AVENTIS
  Company Number: US-SA-2025SA190320

PATIENT
  Sex: Female
  Weight: 81.82 kg

DRUGS (7)
  1. DUPIXENT [Suspect]
     Active Substance: DUPILUMAB
     Indication: Asthma
     Dosage: 200 MG, QOW
     Route: 058
  2. NAPROXEN SODIUM [Concomitant]
     Active Substance: NAPROXEN SODIUM
  3. HYDROXYZINE HYDROCHLORIDE [Concomitant]
     Active Substance: HYDROXYZINE HYDROCHLORIDE
  4. ANTI DIARRHEAL [Concomitant]
     Active Substance: LOPERAMIDE HYDROCHLORIDE
  5. NORTRIPTYLINE HYDROCHLORIDE [Concomitant]
     Active Substance: NORTRIPTYLINE HYDROCHLORIDE
  6. FLUOXETINE HYDROCHLORIDE [Concomitant]
     Active Substance: FLUOXETINE HYDROCHLORIDE
  7. PREGABALIN [Concomitant]
     Active Substance: PREGABALIN

REACTIONS (2)
  - Dyspnoea [Unknown]
  - Product dose omission in error [Unknown]
